FAERS Safety Report 24806147 (Version 1)
Quarter: 2025Q1

REPORT INFORMATION
  Report Type: Report from Study
  Country: CA (occurrence: CA)
  Receive Date: 20250103
  Receipt Date: 20250103
  Transmission Date: 20250408
  Serious: Yes (Hospitalization, Other)
  Sender: ABBVIE
  Company Number: CA-ABBVIE-6068556

PATIENT
  Age: 70 Year
  Sex: Female

DRUGS (21)
  1. RINVOQ [Suspect]
     Active Substance: UPADACITINIB
     Indication: Rheumatoid arthritis
     Route: 048
     Dates: start: 20201020
  2. METOCLOPRAMIDE [Concomitant]
     Active Substance: METOCLOPRAMIDE
     Indication: Product used for unknown indication
     Route: 048
  3. PANTOPRAZOLE MAGNESIUM [Concomitant]
     Active Substance: PANTOPRAZOLE MAGNESIUM
     Indication: Product used for unknown indication
     Dosage: ENTERIC-COATED TABLET?30 MIN BEFORE BREAKFAST +?SUPPER
     Route: 048
  4. PREGABALIN [Concomitant]
     Active Substance: PREGABALIN
     Indication: Product used for unknown indication
     Route: 048
  5. TRAZODONE [Concomitant]
     Active Substance: TRAZODONE HYDROCHLORIDE
     Indication: Product used for unknown indication
     Route: 048
  6. VITAMIN D3 [Concomitant]
     Active Substance: CHOLECALCIFEROL
     Indication: Product used for unknown indication
     Dosage: 1,000 UNITS
     Route: 048
  7. ACETAMINOPHEN [Concomitant]
     Active Substance: ACETAMINOPHEN
     Indication: Product used for unknown indication
     Dosage: PRN
     Route: 048
  8. ALUMINUM HYDROXIDE [Concomitant]
     Active Substance: ALUMINUM HYDROXIDE
     Indication: Product used for unknown indication
     Route: 048
  9. MAGNESIUM HYDROXIDE [Concomitant]
     Active Substance: MAGNESIUM HYDROXIDE
     Indication: Product used for unknown indication
     Route: 048
  10. HYDROMORPHONE [Concomitant]
     Active Substance: HYDROMORPHONE
     Indication: Product used for unknown indication
     Dosage: SHORT ACTING TABLET PRN
     Route: 048
  11. METOCLOPRAMIDE [Concomitant]
     Active Substance: METOCLOPRAMIDE
     Indication: Product used for unknown indication
     Dosage: PRN
     Route: 042
  12. ONDANSETRON [Concomitant]
     Active Substance: ONDANSETRON
     Indication: Product used for unknown indication
     Dosage: PRN
     Route: 048
  13. ONDANSETRON [Concomitant]
     Active Substance: ONDANSETRON
     Indication: Product used for unknown indication
     Dosage: PRN?PRESERVATIVE FREE?INJECTION
     Route: 042
  14. ALBUTEROL [Concomitant]
     Active Substance: ALBUTEROL
     Indication: Product used for unknown indication
     Dosage: ACTUATION INHALER 1-2 PUFF PRN
     Route: 055
  15. BUDESONIDE\FORMOTEROL\GLYCOPYRRONIUM [Concomitant]
     Active Substance: BUDESONIDE\FORMOTEROL\GLYCOPYRRONIUM
     Indication: Product used for unknown indication
     Dosage: 160 MCG - 7.2 MCG?ACTUATION INHALER?2 PUFF
     Route: 055
  16. CALCIUM CARBONATE [Concomitant]
     Active Substance: CALCIUM CARBONATE
     Indication: Product used for unknown indication
     Dosage: WITH BREAKFAST + SUPP
     Route: 048
  17. METOCLOPRAMIDE [Concomitant]
     Active Substance: METOCLOPRAMIDE
     Indication: Product used for unknown indication
     Dosage: PRN
     Route: 048
  18. SENNOSIDES [Concomitant]
     Active Substance: SENNOSIDES
     Indication: Product used for unknown indication
     Dosage: PRN
     Route: 048
  19. AKABUTUS MOUTHWASH [Concomitant]
     Indication: Product used for unknown indication
     Dosage: SWISH AND SPIT,?LIQUID
     Route: 048
  20. AMOXICILLIN\CLAVULANIC ACID [Concomitant]
     Active Substance: AMOXICILLIN\CLAVULANIC ACID
     Indication: Product used for unknown indication
     Dosage: (4:1) 500 MG ?1 TABLET?SCH
     Route: 048
  21. APIXABAN [Concomitant]
     Active Substance: APIXABAN
     Indication: Product used for unknown indication
     Route: 048

REACTIONS (13)
  - Triple negative breast cancer [Unknown]
  - Quality of life decreased [Unknown]
  - Depressive symptom [Unknown]
  - Febrile neutropenia [Unknown]
  - Urosepsis [Unknown]
  - Acute kidney injury [Unknown]
  - Hyponatraemia [Unknown]
  - Interstitial lung disease [Unknown]
  - Chronic obstructive pulmonary disease [Unknown]
  - Chronic kidney disease [Unknown]
  - Hepatic cirrhosis [Unknown]
  - Tumour thrombosis [Unknown]
  - Metastases to bone [Unknown]

NARRATIVE: CASE EVENT DATE: 20230101
